FAERS Safety Report 5974200-3 (Version None)
Quarter: 2008Q4

REPORT INFORMATION
  Report Type: 
  Country: None (occurrence: None)
  Receive Date: 20081125
  Receipt Date: 20081114
  Transmission Date: 20090506
  Serious: Yes (Hospitalization, Other)
  Sender: FDA-Public Use
  Company Number: 54255

PATIENT
  Age: 41 Year
  Sex: Male

DRUGS (2)
  1. IDARUBICIN HCL [Suspect]
     Indication: ACUTE PROMYELOCYTIC LEUKAEMIA
     Dosage: 12MG/M2 PER DAY IV BOLUS, DAYS 1,2,4,6, AND 8
     Route: 040
  2. MITOXANTRONE [Suspect]
     Indication: ACUTE PROMYELOCYTIC LEUKAEMIA
     Dosage: 10MG/M2/DAY, DAYS 1-5

REACTIONS (6)
  - CHRONIC MYELOMONOCYTIC LEUKAEMIA [None]
  - HAEMOGLOBIN DECREASED [None]
  - NEUTROPHIL COUNT DECREASED [None]
  - PLATELET COUNT DECREASED [None]
  - REFUSAL OF TREATMENT BY PATIENT [None]
  - WHITE BLOOD CELL COUNT DECREASED [None]
